FAERS Safety Report 8930534 (Version 14)
Quarter: 2015Q3

REPORT INFORMATION
  Report Type: Report from Study
  Country: CA (occurrence: CA)
  Receive Date: 20121128
  Receipt Date: 20150913
  Transmission Date: 20151125
  Serious: Yes (Hospitalization, Other)
  Sender: FDA-Public Use
  Company Number: CA-ROCHE-1160139

PATIENT
  Age: 72 Year
  Sex: Female
  Weight: 83 kg

DRUGS (11)
  1. ACTEMRA [Suspect]
     Active Substance: TOCILIZUMAB
     Indication: RHEUMATOID ARTHRITIS
     Route: 042
     Dates: start: 20110902, end: 20121102
  2. INDOMETHACIN. [Concomitant]
     Active Substance: INDOMETHACIN
     Dosage: 25 MG-50 MG
     Route: 065
  3. COZAAR [Concomitant]
     Active Substance: LOSARTAN POTASSIUM
     Indication: BLOOD PRESSURE MEASUREMENT
     Route: 065
  4. RITUXAN [Suspect]
     Active Substance: RITUXIMAB
     Indication: RHEUMATOID ARTHRITIS
     Dosage: DAY1, 15, ONGOING?LAST DOSE OF 24/APR/2015
     Route: 042
     Dates: start: 20140611
  5. CALCITE [Concomitant]
     Active Substance: CALCIUM CARBONATE
     Route: 065
  6. NEXIUM [Concomitant]
     Active Substance: ESOMEPRAZOLE MAGNESIUM
     Route: 065
  7. ACETAMINOPHEN. [Concomitant]
     Active Substance: ACETAMINOPHEN
     Route: 048
     Dates: start: 20140611
  8. PREDNISONE. [Concomitant]
     Active Substance: PREDNISONE
     Dosage: 5MG IN MORNING AND 7.5 MG IN SUPPER TIME
     Route: 065
  9. RISEDRONATE [Concomitant]
     Active Substance: RISEDRONATE SODIUM
     Route: 065
  10. METHYLPREDNISOLONE. [Concomitant]
     Active Substance: METHYLPREDNISOLONE
     Route: 042
  11. HYDROCHLOROTHIAZIDE. [Concomitant]
     Active Substance: HYDROCHLOROTHIAZIDE
     Indication: BLOOD PRESSURE MEASUREMENT

REACTIONS (8)
  - Neoplasm malignant [Unknown]
  - Intestinal polyp [Recovered/Resolved]
  - Ovarian disorder [Not Recovered/Not Resolved]
  - Gastrointestinal disorder [Unknown]
  - Pelvic pain [Not Recovered/Not Resolved]
  - Abscess [Recovered/Resolved]
  - Blood pressure increased [Unknown]
  - No therapeutic response [Unknown]

NARRATIVE: CASE EVENT DATE: 201211
